FAERS Safety Report 14161383 (Version 4)
Quarter: 2018Q1

REPORT INFORMATION
  Report Type: Report from Study
  Country: CA (occurrence: CA)
  Receive Date: 20171106
  Receipt Date: 20180227
  Transmission Date: 20180508
  Serious: Yes (Hospitalization)
  Sender: FDA-Public Use
  Company Number: CA-SA-2017SA025018

PATIENT
  Age: 37 Year
  Sex: Female

DRUGS (8)
  1. SOLU-MEDROL [Concomitant]
     Active Substance: METHYLPREDNISOLONE SODIUM SUCCINATE
     Indication: PREMEDICATION
     Route: 042
     Dates: start: 20170206, end: 20170210
  2. BENADRYL [Concomitant]
     Active Substance: DIPHENHYDRAMINE HYDROCHLORIDE
     Indication: PREMEDICATION
     Route: 048
     Dates: start: 20170206
  3. ACETAMINOPHEN. [Concomitant]
     Active Substance: ACETAMINOPHEN
     Indication: PREMEDICATION
     Dosage: DOSE: 975MG-1GM
     Route: 048
     Dates: start: 20170206
  4. RANITIDINE. [Concomitant]
     Active Substance: RANITIDINE
     Indication: PREMEDICATION
     Route: 048
     Dates: start: 20170206, end: 20170210
  5. ATARAX [Concomitant]
     Active Substance: HYDROXYZINE HYDROCHLORIDE
     Route: 065
     Dates: end: 201702
  6. GRAVOL [Concomitant]
     Active Substance: DIMENHYDRINATE
     Indication: PREMEDICATION
     Dosage: 50-100MG
     Route: 042
     Dates: start: 20170206
  7. LEMTRADA [Suspect]
     Active Substance: ALEMTUZUMAB
     Indication: RELAPSING-REMITTING MULTIPLE SCLEROSIS
     Route: 041
     Dates: start: 20170206, end: 20170210
  8. ACYCLOVIR. [Concomitant]
     Active Substance: ACYCLOVIR
     Indication: PREMEDICATION
     Route: 048
     Dates: start: 20170206

REACTIONS (45)
  - Urine analysis abnormal [Not Recovered/Not Resolved]
  - Neutrophil percentage decreased [Recovered/Resolved]
  - Eosinophil percentage increased [Recovered/Resolved]
  - Neutrophil count decreased [Recovered/Resolved]
  - Anxiety [Recovered/Resolved]
  - White blood cell count decreased [Not Recovered/Not Resolved]
  - Contusion [Not Recovered/Not Resolved]
  - Haematocrit decreased [Not Recovered/Not Resolved]
  - Mean cell haemoglobin concentration decreased [Recovered/Resolved]
  - Fatigue [Not Recovered/Not Resolved]
  - Vision blurred [Recovered/Resolved]
  - Urine abnormality [Not Recovered/Not Resolved]
  - Headache [Not Recovered/Not Resolved]
  - Nausea [Not Recovered/Not Resolved]
  - Pruritus generalised [Recovered/Resolved]
  - Fall [Recovered/Resolved]
  - Joint swelling [Recovered/Resolved]
  - Muscle spasms [Recovered/Resolved]
  - Hot flush [Not Recovered/Not Resolved]
  - Hyperaesthesia [Recovered/Resolved]
  - Infusion site swelling [Recovered/Resolved]
  - Feeling hot [Recovered/Resolved]
  - Stress [Recovered/Resolved]
  - Haemoglobin decreased [Recovered/Resolved]
  - Crystal urine present [Unknown]
  - Blood pressure increased [Recovered/Resolved]
  - Rash [Not Recovered/Not Resolved]
  - Rash generalised [Recovered/Resolved]
  - Heart rate increased [Recovered/Resolved]
  - Peripheral swelling [Recovered/Resolved]
  - Nitrite urine present [Recovered/Resolved]
  - Bacterial test positive [Not Recovered/Not Resolved]
  - Epistaxis [Recovered/Resolved]
  - Burning sensation [Recovering/Resolving]
  - Blood creatinine decreased [Recovered/Resolved]
  - Erythema [Recovered/Resolved]
  - Abdominal pain upper [Recovered/Resolved]
  - Red blood cell count decreased [Not Recovered/Not Resolved]
  - Amnesia [Recovered/Resolved]
  - Asthenia [Not Recovered/Not Resolved]
  - Epigastric discomfort [Recovered/Resolved]
  - Infusion site erythema [Recovered/Resolved]
  - Rash pruritic [Recovering/Resolving]
  - Abdominal distension [Recovered/Resolved]
  - Lymphocyte count decreased [Not Recovered/Not Resolved]

NARRATIVE: CASE EVENT DATE: 2017
